FAERS Safety Report 8914409 (Version 3)
Quarter: 2013Q1

REPORT INFORMATION
  Report Type: Spontaneous
  Country: US (occurrence: US)
  Receive Date: 20121119
  Receipt Date: 20130214
  Transmission Date: 20140127
  Serious: Yes (Other)
  Sender: FDA-Public Use
  Company Number: US-ASTRAZENECA-2012SE85566

PATIENT
  Age: 66 Year
  Sex: Female
  Weight: 78 kg

DRUGS (3)
  1. NEXIUM [Suspect]
     Indication: GASTROOESOPHAGEAL REFLUX DISEASE
     Route: 048
     Dates: start: 2005
  2. DOXEPIN [Concomitant]
     Dates: start: 201103
  3. NEURONTIN [Concomitant]
     Indication: NEUROPATHY PERIPHERAL
     Dates: start: 201207

REACTIONS (4)
  - Lymphoma [Not Recovered/Not Resolved]
  - Erosive oesophagitis [Not Recovered/Not Resolved]
  - Visual impairment [Not Recovered/Not Resolved]
  - Therapeutic response decreased [Unknown]
